FAERS Safety Report 23140984 (Version 3)
Quarter: 2024Q1

REPORT INFORMATION
  Report Type: Spontaneous
  Country: CA (occurrence: CA)
  Receive Date: 20231103
  Receipt Date: 20240113
  Transmission Date: 20240410
  Serious: Yes (Other)
  Sender: FDA-Public Use
  Company Number: CA-CELLTRION INC.-2023CA013029

PATIENT

DRUGS (4)
  1. INFLECTRA [Suspect]
     Active Substance: INFLIXIMAB-DYYB
     Indication: Crohn^s disease
     Dosage: 5 MG/KG,  EVERY 10 WEEKS
     Route: 042
     Dates: start: 20220616
  2. INFLECTRA [Suspect]
     Active Substance: INFLIXIMAB-DYYB
     Dosage: 5 MG/KG,  EVERY 10 WEEKS
     Route: 042
     Dates: start: 20230327
  3. INFLECTRA [Suspect]
     Active Substance: INFLIXIMAB-DYYB
     Dosage: 5 MG/KG, EVERY 10 WEEKS
     Route: 042
     Dates: start: 20230816
  4. INFLECTRA [Suspect]
     Active Substance: INFLIXIMAB-DYYB
     Dosage: 490 MG, EVERY 10 WEEKS
     Route: 042
     Dates: start: 20231025

REACTIONS (6)
  - Abortion spontaneous [Unknown]
  - Uterine mass [Unknown]
  - Influenza [Not Recovered/Not Resolved]
  - Streptococcal infection [Not Recovered/Not Resolved]
  - COVID-19 [Unknown]
  - Off label use [Unknown]

NARRATIVE: CASE EVENT DATE: 20220616
